FAERS Safety Report 6636970-0 (Version None)
Quarter: 2010Q1

REPORT INFORMATION
  Report Type: 
  Country: None (occurrence: None)
  Receive Date: 20100301
  Receipt Date: 20090723
  Transmission Date: 20100710
  Serious: Yes (Death)
  Sender: FDA-Public Use
  Company Number: RB-18338-2009

PATIENT
  Age: 27 Year
  Sex: Female

DRUGS (1)
  1. SUBUTEX [Suspect]
     Indication: DRUG DEPENDENCE
     Dosage: SUBLINGUAL
     Route: 060
     Dates: start: 20080101, end: 20081101

REACTIONS (1)
  - UNEVALUABLE EVENT [None]
